FAERS Safety Report 25332060 (Version 2)
Quarter: 2025Q3

REPORT INFORMATION
  Report Type: Spontaneous
  Country: EU (occurrence: EU)
  Receive Date: 20250519
  Receipt Date: 20250708
  Transmission Date: 20251021
  Serious: Yes (Hospitalization)
  Sender: B. BRAUN MEDICAL INC.
  Company Number: None

PATIENT
  Age: 42 Year
  Sex: Female

DRUGS (4)
  1. ACETAMINOPHEN [Suspect]
     Active Substance: ACETAMINOPHEN
  2. PREGABALIN [Suspect]
     Active Substance: PREGABALIN
     Dates: start: 20250102, end: 20250102
  3. DULOXETINE [Suspect]
     Active Substance: DULOXETINE
     Dates: start: 20250102, end: 20250102
  4. NAPROXEN [Suspect]
     Active Substance: NAPROXEN
     Dates: start: 20250102, end: 20250102

REACTIONS (6)
  - Toxicity to various agents [Unknown]
  - Anxiety [Unknown]
  - Apathy [Unknown]
  - Suicidal ideation [Unknown]
  - Frostbite [Unknown]
  - Intentional overdose [Unknown]

NARRATIVE: CASE EVENT DATE: 20250102
